FAERS Safety Report 7531405-8 (Version None)
Quarter: 2011Q2

REPORT INFORMATION
  Report Type: 
  Country: None (occurrence: None)
  Receive Date: 20110608
  Receipt Date: 20110527
  Transmission Date: 20111010
  Serious: Yes (Life-Threatening, Hospitalization, Other)
  Sender: FDA-Public Use
  Company Number: CH-ELI_LILLY_AND_COMPANY-CH201105008301

PATIENT
  Sex: Female
  Weight: 60 kg

DRUGS (10)
  1. ATACAND [Concomitant]
     Indication: HYPERTENSION
     Dosage: UNK, QD
     Route: 048
     Dates: start: 20090101, end: 20110310
  2. BILOL [Concomitant]
     Indication: HYPERTENSION
     Dosage: 5 MG, QD
     Route: 048
     Dates: start: 20090101
  3. FOLIC ACID [Concomitant]
     Indication: FOLATE DEFICIENCY
     Dosage: 5 MG, WEEKLY (1/W)
     Route: 065
  4. FORTEO [Suspect]
     Indication: OSTEOPOROSIS
     Dosage: 20 UG, QD
     Route: 058
     Dates: start: 20101116, end: 20110310
  5. LEVOTHYROXINE SODIUM [Concomitant]
     Indication: HYPOTHYROIDISM
     Dosage: 0.05 MG, QD
     Route: 048
  6. SPIRICORT [Concomitant]
     Indication: RHEUMATOID ARTHRITIS
     Dosage: 5 MG, QD
     Route: 048
  7. LEVEMIR [Concomitant]
     Indication: DIABETES MELLITUS
     Dosage: 8 IU, QD
     Route: 065
  8. NOVORAPID [Concomitant]
     Indication: DIABETES MELLITUS
     Dosage: UNK, PRN
     Route: 065
  9. PANTOPRAZOLE [Concomitant]
     Indication: PROPHYLAXIS
     Dosage: 20 MG, QD
     Route: 065
  10. METHOTREXATE [Concomitant]
     Indication: RHEUMATOID ARTHRITIS
     Dosage: 5 MG, WEEKLY (1/W)
     Route: 065

REACTIONS (7)
  - PNEUMONIA [None]
  - MYOCARDIAL INFARCTION [None]
  - ANAEMIA [None]
  - ASTHENIA [None]
  - PULMONARY OEDEMA [None]
  - RENAL FAILURE ACUTE [None]
  - DYSPNOEA [None]
